FAERS Safety Report 6433814-7 (Version None)
Quarter: 2009Q4

REPORT INFORMATION
  Report Type: 
  Country: None (occurrence: None)
  Receive Date: 20091110
  Receipt Date: 20091103
  Transmission Date: 20100525
  Serious: Yes (Death)
  Sender: FDA-Public Use
  Company Number: US-CELGENEUS-163-21880-09101980

PATIENT
  Sex: Male
  Weight: 108.9 kg

DRUGS (31)
  1. REVLIMID [Suspect]
     Indication: CHRONIC GRAFT VERSUS HOST DISEASE
     Route: 048
     Dates: start: 20090624, end: 20090714
  2. PREDNISONE [Concomitant]
     Route: 048
  3. PREDNISONE [Concomitant]
     Dosage: 50MG ALTERNATING WITH ZERO
     Route: 048
  4. PROCHLORPERAZINE [Concomitant]
     Indication: DRUG USE FOR UNKNOWN INDICATION
     Route: 048
  5. ACTIGALL [Concomitant]
     Indication: DRUG USE FOR UNKNOWN INDICATION
     Route: 048
  6. ARTIFICIAL TEARS [Concomitant]
     Dosage: 1
     Route: 047
  7. ATIVAN [Concomitant]
     Indication: INSOMNIA
     Route: 048
  8. CENTRUM SILVER [Concomitant]
     Indication: DRUG USE FOR UNKNOWN INDICATION
     Route: 048
  9. COMPAZINE [Concomitant]
     Indication: NAUSEA
     Route: 048
  10. COMPAZINE [Concomitant]
     Indication: VOMITING
  11. FUROSEMIDE [Concomitant]
     Route: 048
  12. FUROSEMIDE [Concomitant]
     Route: 048
  13. GENGRAF CYCLOSPORIN [Concomitant]
     Indication: DRUG USE FOR UNKNOWN INDICATION
     Route: 048
  14. LOVAZA [Concomitant]
     Indication: DRUG USE FOR UNKNOWN INDICATION
     Route: 048
  15. LEVAQUIN [Concomitant]
     Indication: DRUG USE FOR UNKNOWN INDICATION
     Route: 048
  16. LEVAQUIN [Concomitant]
     Route: 048
  17. LEVAQUIN [Concomitant]
     Route: 048
  18. LIPITOR [Concomitant]
     Indication: DRUG USE FOR UNKNOWN INDICATION
     Route: 048
  19. LIPITOR [Concomitant]
     Route: 048
  20. LOTEMAX [Concomitant]
     Indication: DRUG USE FOR UNKNOWN INDICATION
     Dosage: 1 DROP 4X A DAY FOR 1 WEEK, 3X A DAY FOR 1 WEEK, 2X  A DAY FOR 1 WEEK DAILY FOR 1 WEEK THEN STOP
     Route: 047
  21. MAGNESIUM [Concomitant]
     Indication: DRUG USE FOR UNKNOWN INDICATION
     Route: 048
  22. MEDROL [Concomitant]
     Indication: DRUG USE FOR UNKNOWN INDICATION
     Dosage: 16MG 3 IN THE AM 2 IN MID TO LATE AFTERNOON WITH FOOD
     Route: 048
  23. MEPRON [Concomitant]
     Indication: DRUG USE FOR UNKNOWN INDICATION
     Route: 048
  24. NEXIUM [Concomitant]
     Indication: DRUG USE FOR UNKNOWN INDICATION
     Route: 048
  25. NOXAFIL [Concomitant]
     Indication: DRUG USE FOR UNKNOWN INDICATION
     Dosage: 200/5ML MG
     Route: 048
  26. RESTASIS [Concomitant]
     Indication: DRUG USE FOR UNKNOWN INDICATION
     Route: 047
  27. TUMS [Concomitant]
     Indication: DRUG USE FOR UNKNOWN INDICATION
     Route: 048
  28. VALCYTE [Concomitant]
     Indication: DRUG USE FOR UNKNOWN INDICATION
     Route: 048
  29. VALTREX [Concomitant]
     Indication: DRUG USE FOR UNKNOWN INDICATION
     Route: 048
  30. MULTI-VITAMINS [Concomitant]
     Indication: DRUG USE FOR UNKNOWN INDICATION
     Route: 048
  31. CYCLOSPORINE [Concomitant]
     Indication: DRUG USE FOR UNKNOWN INDICATION
     Route: 048

REACTIONS (2)
  - CARDIAC ARREST [None]
  - PLATELET COUNT DECREASED [None]
